FAERS Safety Report 24272021 (Version 3)
Quarter: 2024Q4

REPORT INFORMATION
  Report Type: Spontaneous
  Country: CA (occurrence: CA)
  Receive Date: 20240902
  Receipt Date: 20241111
  Transmission Date: 20250114
  Serious: Yes (Other)
  Sender: CELLTRION
  Company Number: CA-PFIZER INC-202400216364

PATIENT

DRUGS (5)
  1. INFLECTRA [Suspect]
     Active Substance: INFLIXIMAB-DYYB
     Indication: Crohn^s disease
     Dosage: 600 MG, AT WEEK 0, 2 (0,2,6, AND THEN EVERY 8 WEEKS)
     Route: 042
     Dates: start: 20240627
  2. INFLECTRA [Suspect]
     Active Substance: INFLIXIMAB-DYYB
     Dosage: 600 MG, AT WEEK 0, 2 (0,2,6 AND THEN EVERY 8 WEEKS)
     Route: 042
     Dates: start: 20240711
  3. INFLECTRA [Suspect]
     Active Substance: INFLIXIMAB-DYYB
     Dosage: 300 MG, WEEK 8 (INSTEAD OF WEEK 6), THEN Q 8 WEEKS
     Route: 042
     Dates: start: 20240822
  4. INFLECTRA [Suspect]
     Active Substance: INFLIXIMAB-DYYB
     Dosage: 300 MG, AFTER 10 WEEKS (300 MG, EVERY 10 WEEKS)
     Route: 042
     Dates: start: 20241031
  5. PREDNISONE [Concomitant]
     Active Substance: PREDNISONE
     Dosage: UNK

REACTIONS (4)
  - Uveitis [Recovered/Resolved]
  - Alopecia [Not Recovered/Not Resolved]
  - Condition aggravated [Recovering/Resolving]
  - Off label use [Unknown]

NARRATIVE: CASE EVENT DATE: 20240101
